FAERS Safety Report 17209277 (Version 1)
Quarter: 2019Q4

REPORT INFORMATION
  Report Type: Other
  Country: US (occurrence: US)
  Receive Date: 20191227
  Receipt Date: 20191227
  Transmission Date: 20200122
  Serious: No
  Sender: FDA-Public Use
  Company Number: US-ASCENT PHARMACEUTICALS, INC.-2078237

PATIENT

DRUGS (1)
  1. METHYLPHENIDATE HYDROCHLORIDE EXTENDED-RELEASE [Suspect]
     Active Substance: METHYLPHENIDATE HYDROCHLORIDE
     Indication: PRODUCT USED FOR UNKNOWN INDICATION
     Route: 048

REACTIONS (5)
  - Discomfort [Unknown]
  - Anxiety [Unknown]
  - Tremor [Unknown]
  - Therapeutic product effect decreased [Unknown]
  - Sympathomimetic effect [Unknown]
